FAERS Safety Report 24272287 (Version 2)
Quarter: 2024Q4

REPORT INFORMATION
  Report Type: Report from Study
  Country: US (occurrence: US)
  Receive Date: 20240902
  Receipt Date: 20241017
  Transmission Date: 20250115
  Serious: Yes (Other)
  Sender: ABBVIE
  Company Number: US-ABBVIE-5710424

PATIENT
  Age: 43 Year
  Sex: Female

DRUGS (1)
  1. SKYRIZI [Suspect]
     Active Substance: RISANKIZUMAB-RZAA
     Indication: Product used for unknown indication
     Route: 058
     Dates: start: 20200716

REACTIONS (10)
  - Sinus disorder [Not Recovered/Not Resolved]
  - Pulmonary mass [Not Recovered/Not Resolved]
  - Ear infection [Not Recovered/Not Resolved]
  - Nasal septum deviation [Unknown]
  - Nasal polyps [Not Recovered/Not Resolved]
  - Arteriosclerosis [Unknown]
  - Sinusitis [Not Recovered/Not Resolved]
  - Paranasal sinus mass [Unknown]
  - Hypertension [Not Recovered/Not Resolved]
  - Polyp [Not Recovered/Not Resolved]

NARRATIVE: CASE EVENT DATE: 20230101
